FAERS Safety Report 10232704 (Version 2)
Quarter: 2014Q3

REPORT INFORMATION
  Report Type: Spontaneous
  Country: CA (occurrence: CA)
  Receive Date: 20140612
  Receipt Date: 20140710
  Transmission Date: 20150326
  Serious: Yes (Hospitalization, Other)
  Sender: FDA-Public Use
  Company Number: CA-HORIZON-VIM-0057-2014

PATIENT
  Sex: Male

DRUGS (3)
  1. VIMOVO [Suspect]
     Active Substance: ESOMEPRAZOLE MAGNESIUM\NAPROXEN
     Indication: PAIN
     Route: 048
     Dates: start: 20131105, end: 20131108
  2. ASPIRIN. [Concomitant]
     Active Substance: ASPIRIN
     Dosage: DAILY
  3. OTHER MEDICATION [Concomitant]
     Active Substance: UNSPECIFIED INGREDIENT

REACTIONS (5)
  - Gastric perforation [Unknown]
  - Gastrointestinal haemorrhage [Recovered/Resolved]
  - Helicobacter test positive [None]
  - Dysstasia [Recovered/Resolved]
  - Gastric ulcer haemorrhage [None]

NARRATIVE: CASE EVENT DATE: 201311
